FAERS Safety Report 19301679 (Version 1)
Quarter: 2021Q2

REPORT INFORMATION
  Report Type: Spontaneous
  Country: US (occurrence: US)
  Receive Date: 20210525
  Receipt Date: 20210525
  Transmission Date: 20210717
  Serious: No
  Sender: FDA-Public Use
  Company Number: None

PATIENT
  Sex: Male

DRUGS (3)
  1. OTEZLA [Suspect]
     Active Substance: APREMILAST
     Indication: SPINAL OSTEOARTHRITIS
     Route: 048
     Dates: start: 201908
  2. OTEZLA [Suspect]
     Active Substance: APREMILAST
     Indication: PSORIATIC ARTHROPATHY
     Route: 048
     Dates: start: 201908
  3. OTEZLA [Suspect]
     Active Substance: APREMILAST
     Indication: BACK PAIN
     Route: 048
     Dates: start: 201908

REACTIONS (3)
  - Infection [None]
  - Mental disorder [None]
  - Malaise [None]
